FAERS Safety Report 4506065-0 (Version None)
Quarter: 2005Q1

REPORT INFORMATION
  Report Type: 
  Country: None (occurrence: None)
  Receive Date: 20041025
  Receipt Date: 20040507
  Transmission Date: 20050727
  Serious: Yes (Hospitalization)
  Sender: FDA-Public Use
  Company Number: US-JNJFOC-20040501859

PATIENT
  Age: 80 Year
  Sex: Male
  Weight: 78.0187 kg

DRUGS (12)
  1. INFLIXIMAB (INFLIXIMAB, RECOMBINANT) LYOPHILIZED POWDER [Suspect]
     Indication: RHEUMATOID ARTHRITIS
     Dosage: INTRAVENOUS
     Route: 042
     Dates: start: 20020221, end: 20031101
  2. PREDNISONE [Concomitant]
  3. METHOTREXATE [Concomitant]
  4. ISOSORBIDE (ISOSORBIDE) [Concomitant]
  5. AVAPRO [Concomitant]
  6. INSULIN [Concomitant]
  7. COUMADIN [Concomitant]
  8. ZYLOPRIM [Concomitant]
  9. TRIAMTERENE (TRIAMTERENE) [Concomitant]
  10. TOPROL (METOPROLOL SUCCINATE) [Concomitant]
  11. LEVOXYL [Concomitant]
  12. XALATAN [Concomitant]

REACTIONS (2)
  - CELLULITIS [None]
  - CEREBROVASCULAR ACCIDENT [None]
